FAERS Safety Report 25473274 (Version 1)
Quarter: 2025Q2

REPORT INFORMATION
  Report Type: Spontaneous
  Country: FR (occurrence: FR)
  Receive Date: 20250624
  Receipt Date: 20250624
  Transmission Date: 20250717
  Serious: Yes (Other)
  Sender: AUROBINDO
  Company Number: FR-AUROBINDO-AUR-APL-2025-030772

PATIENT
  Age: 77 Year
  Sex: Male

DRUGS (11)
  1. CARBOPLATIN [Suspect]
     Active Substance: CARBOPLATIN
     Indication: Squamous cell carcinoma
     Route: 065
  2. GEMCITABINE [Suspect]
     Active Substance: GEMCITABINE
     Indication: Squamous cell carcinoma
     Route: 065
  3. METHOTREXATE [Suspect]
     Active Substance: METHOTREXATE
     Indication: Squamous cell carcinoma
     Route: 065
  4. PACLITAXEL [Suspect]
     Active Substance: PACLITAXEL
     Indication: Squamous cell carcinoma
     Route: 065
  5. DOCETAXEL [Suspect]
     Active Substance: DOCETAXEL
     Indication: Squamous cell carcinoma
     Route: 065
     Dates: end: 202007
  6. CETUXIMAB [Suspect]
     Active Substance: CETUXIMAB
     Indication: Squamous cell carcinoma
     Route: 065
     Dates: end: 202007
  7. CISPLATIN [Suspect]
     Active Substance: CISPLATIN
     Indication: Squamous cell carcinoma
     Route: 065
  8. NIVOLUMAB [Suspect]
     Active Substance: NIVOLUMAB
     Indication: Squamous cell carcinoma
     Route: 065
     Dates: start: 202102, end: 202203
  9. ERDAFITINIB [Concomitant]
     Active Substance: ERDAFITINIB
     Indication: Squamous cell carcinoma
     Route: 065
  10. ERDAFITINIB [Concomitant]
     Active Substance: ERDAFITINIB
     Route: 065
  11. FLUOROURACIL [Concomitant]
     Active Substance: FLUOROURACIL
     Indication: Drug therapy
     Route: 065

REACTIONS (1)
  - Drug ineffective [Unknown]
